FAERS Safety Report 5092898-1 (Version None)
Quarter: 2006Q3

REPORT INFORMATION
  Report Type: 
  Country: None (occurrence: None)
  Receive Date: 20060828
  Receipt Date: 20060816
  Transmission Date: 20061208
  Serious: Yes (Other)
  Sender: FDA-Public Use
  Company Number: 2006099647

PATIENT
  Age: 6 Year
  Sex: Male
  Weight: 20.4119 kg

DRUGS (1)
  1. BENADRYL [Suspect]
     Indication: HYPERSENSITIVITY
     Dosage: 1 TEASPOON ONCE, ORAL
     Route: 048
     Dates: start: 20060812, end: 20060812

REACTIONS (6)
  - FEAR [None]
  - FORMICATION [None]
  - HALLUCINATION [None]
  - ILLUSION [None]
  - MUSCLE SPASMS [None]
  - SCREAMING [None]
